FAERS Safety Report 5297632-8 (Version None)
Quarter: 2007Q2

REPORT INFORMATION
  Report Type: 
  Country: None (occurrence: None)
  Receive Date: 20070412
  Receipt Date: 20070412
  Transmission Date: 20071010
  Serious: Yes (Life-Threatening)
  Sender: FDA-Public Use
  Company Number: None

PATIENT
  Age: 45 Year
  Sex: Male

DRUGS (1)
  1. XIGRIS [Suspect]
     Dosage: 24MCG/KG/HR IV
     Route: 042
     Dates: start: 20070324, end: 20070327

REACTIONS (2)
  - HAEMATOMA [None]
  - LOSS OF CONSCIOUSNESS [None]
